FAERS Safety Report 20728970 (Version 1)
Quarter: 2022Q2

REPORT INFORMATION
  Report Type: Spontaneous
  Country: CA (occurrence: CA)
  Receive Date: 20220420
  Receipt Date: 20220420
  Transmission Date: 20220721
  Serious: Yes (Other)
  Sender: FDA-Public Use
  Company Number: CA-JNJFOC-20220431275

PATIENT
  Age: 55 Year
  Sex: Female
  Weight: 162 kg

DRUGS (2)
  1. REMICADE [Suspect]
     Active Substance: INFLIXIMAB
     Indication: Crohn^s disease
     Route: 042
  2. COVID-19 VACCINE NOS [Suspect]
     Active Substance: COVID-19 VACCINE NOS
     Indication: COVID-19 immunisation
     Route: 030

REACTIONS (6)
  - Fluid retention [Unknown]
  - Secretion discharge [Unknown]
  - Vaginal haemorrhage [Unknown]
  - Skin ulcer [Unknown]
  - Erythema [Unknown]
  - Oedema peripheral [Unknown]
